FAERS Safety Report 6687726-4 (Version None)
Quarter: 2010Q2

REPORT INFORMATION
  Report Type: 
  Country: None (occurrence: None)
  Receive Date: 20100420
  Receipt Date: 20100409
  Transmission Date: 20101027
  Serious: Yes (Hospitalization)
  Sender: FDA-Public Use
  Company Number: US-BIOGENIDEC-2010BI012071

PATIENT
  Age: 44 Year
  Sex: Female
  Weight: 77 kg

DRUGS (2)
  1. TYSABRI [Suspect]
     Indication: MULTIPLE SCLEROSIS
     Route: 042
     Dates: start: 20090831
  2. BLOOD PRESSURE MEDICATION [Concomitant]
     Indication: HYPERTENSION
     Dates: start: 20080101, end: 20090101

REACTIONS (7)
  - ALTERED VISUAL DEPTH PERCEPTION [None]
  - COORDINATION ABNORMAL [None]
  - DRUG INEFFECTIVE [None]
  - LOSS OF CONSCIOUSNESS [None]
  - RESPIRATORY ARREST [None]
  - SOMNOLENCE [None]
  - VERTIGO [None]
